FAERS Safety Report 5834192-4 (Version None)
Quarter: 2008Q3

REPORT INFORMATION
  Report Type: 
  Country: None (occurrence: None)
  Receive Date: 20080805
  Receipt Date: 20080715
  Transmission Date: 20090109
  Serious: No
  Sender: FDA-Public Use
  Company Number: US-BAYER-200811685BCC

PATIENT
  Age: 68 Year
  Sex: Female
  Weight: 61 kg

DRUGS (3)
  1. ALEVE [Suspect]
     Indication: RHEUMATOID ARTHRITIS
     Route: 048
     Dates: start: 20080414
  2. PREDNISONE TAB [Concomitant]
  3. PROTONIX [Concomitant]

REACTIONS (3)
  - INFLAMMATION [None]
  - LABORATORY TEST ABNORMAL [None]
  - POLYMYALGIA RHEUMATICA [None]
